FAERS Safety Report 16019472 (Version 1)
Quarter: 2019Q1

REPORT INFORMATION
  Report Type: Report from Study
  Country: JP (occurrence: JP)
  Receive Date: 20190228
  Receipt Date: 20190228
  Transmission Date: 20190418
  Serious: Yes (Life-Threatening, Other)
  Sender: FDA-Public Use
  Company Number: PHHY2016JP187325

PATIENT
  Age: 68 Year
  Sex: Female

DRUGS (29)
  1. FARYDAK [Suspect]
     Active Substance: PANOBINOSTAT
     Dosage: 20 MG, (3 ADMINISTRATIONS PER CYCLE)
     Route: 058
     Dates: start: 20160421, end: 20160511
  2. LENADEX [Concomitant]
     Active Substance: DEXAMETHASONE ACETATE
     Indication: PLASMA CELL MYELOMA
     Dosage: 25 MG, UNK
     Route: 048
     Dates: start: 20160210, end: 20160622
  3. FERROUS SODIUM CITRATE [Concomitant]
     Active Substance: SODIUM FERROUS CITRATE
     Indication: PRODUCT USED FOR UNKNOWN INDICATION
     Dosage: 50 MG, UNK
     Route: 065
  4. ARTIST [Concomitant]
     Active Substance: CARVEDILOL
     Indication: PRODUCT USED FOR UNKNOWN INDICATION
     Dosage: 2.5 MG, UNK
     Route: 065
  5. FARYDAK [Suspect]
     Active Substance: PANOBINOSTAT
     Dosage: 20 MG, (3 ADMINISTRATIONS PER CYCLE)
     Route: 058
     Dates: start: 20160512, end: 20160525
  6. FARYDAK [Suspect]
     Active Substance: PANOBINOSTAT
     Dosage: 20 MG, (3 ADMINISTRATIONS PER CYCLE)
     Route: 058
     Dates: start: 20160526, end: 20160608
  7. BROTIZOLAM [Concomitant]
     Active Substance: BROTIZOLAM
     Indication: PRODUCT USED FOR UNKNOWN INDICATION
     Dosage: 0.25 MG, UNK
     Route: 065
  8. LEVOFLOXACIN. [Concomitant]
     Active Substance: LEVOFLOXACIN
     Indication: PRODUCT USED FOR UNKNOWN INDICATION
     Dosage: 500 MG, UNK
     Route: 065
  9. FARYDAK [Suspect]
     Active Substance: PANOBINOSTAT
     Dosage: 20 MG, (3 ADMINISTRATIONS PER CYCLE)
     Route: 058
     Dates: start: 20160407, end: 20160420
  10. ENDOXAN [Concomitant]
     Active Substance: CYCLOPHOSPHAMIDE
     Indication: PLASMA CELL MYELOMA
     Dosage: 250 MG, UNK
     Route: 048
     Dates: start: 20160713, end: 20160719
  11. FARYDAK [Suspect]
     Active Substance: PANOBINOSTAT
     Indication: PLASMA CELL MYELOMA
     Dosage: 20 MG, (6 ADMINISTRATIONS PER CYCLE)
     Route: 058
     Dates: start: 20160210, end: 20160302
  12. FARYDAK [Suspect]
     Active Substance: PANOBINOSTAT
     Dosage: 20 MG, (6 ADMINISTRATIONS PER CYCLE)
     Route: 058
     Dates: start: 20160303, end: 20160323
  13. BORTEZOMIB. [Concomitant]
     Active Substance: BORTEZOMIB
     Dosage: 1.3 MG/M2, QW
     Route: 058
     Dates: start: 20160421, end: 20160511
  14. BAYASPIRIN [Concomitant]
     Active Substance: ASPIRIN
     Indication: PRODUCT USED FOR UNKNOWN INDICATION
     Dosage: 100 MG, UNK
     Route: 065
  15. BORTEZOMIB. [Concomitant]
     Active Substance: BORTEZOMIB
     Indication: PLASMA CELL MYELOMA
     Dosage: 1.3 MG/M2, QW
     Route: 058
     Dates: start: 20160210, end: 20160302
  16. CALONAL [Concomitant]
     Active Substance: ACETAMINOPHEN
     Indication: PRODUCT USED FOR UNKNOWN INDICATION
     Dosage: 200 MG, UNK
     Route: 065
  17. FARYDAK [Suspect]
     Active Substance: PANOBINOSTAT
     Dosage: 20 MG, (3 ADMINISTRATIONS PER CYCLE)
     Route: 058
     Dates: start: 20160324, end: 20160406
  18. BORTEZOMIB. [Concomitant]
     Active Substance: BORTEZOMIB
     Dosage: 1.3 MG/M2, QW
     Route: 058
     Dates: start: 20160303, end: 20160323
  19. BORTEZOMIB. [Concomitant]
     Active Substance: BORTEZOMIB
     Dosage: 1.3 MG/M2, QW
     Route: 058
     Dates: start: 20160512, end: 20160525
  20. BORTEZOMIB. [Concomitant]
     Active Substance: BORTEZOMIB
     Dosage: 1.3 MG/M2, QW
     Route: 058
     Dates: start: 20160526, end: 20160608
  21. FEBURIC [Concomitant]
     Active Substance: FEBUXOSTAT
     Indication: PRODUCT USED FOR UNKNOWN INDICATION
     Dosage: 20 MG, UNK
     Route: 065
  22. VALTREX [Concomitant]
     Active Substance: VALACYCLOVIR HYDROCHLORIDE
     Indication: PROPHYLAXIS
     Dosage: 500 MG, ONCE IN TWO DAYS (QOD)
     Route: 048
     Dates: end: 20160910
  23. BORTEZOMIB. [Concomitant]
     Active Substance: BORTEZOMIB
     Dosage: 1.3 MG/M2, QW
     Route: 058
     Dates: start: 20160609, end: 20160622
  24. NEXIUM [Concomitant]
     Active Substance: ESOMEPRAZOLE MAGNESIUM
     Indication: PRODUCT USED FOR UNKNOWN INDICATION
     Dosage: 20 MG, UNK
     Route: 065
  25. CRESTOR [Concomitant]
     Active Substance: ROSUVASTATIN CALCIUM
     Indication: PRODUCT USED FOR UNKNOWN INDICATION
     Dosage: 2.5 MG, UNK
     Route: 065
  26. POMALYST [Concomitant]
     Active Substance: POMALIDOMIDE
     Indication: PLASMA CELL MYELOMA
     Dosage: 2 MG, UNK
     Route: 048
     Dates: start: 20160728, end: 20160912
  27. FARYDAK [Suspect]
     Active Substance: PANOBINOSTAT
     Dosage: 20 MG, (3 ADMINISTRATIONS PER CYCLE)
     Route: 058
     Dates: start: 20160609, end: 20160622
  28. BORTEZOMIB. [Concomitant]
     Active Substance: BORTEZOMIB
     Dosage: 1.3 MG/M2, QW
     Route: 058
     Dates: start: 20160324, end: 20160406
  29. BORTEZOMIB. [Concomitant]
     Active Substance: BORTEZOMIB
     Dosage: 1.3 MG/M2, QW
     Route: 058
     Dates: start: 20160407, end: 20160420

REACTIONS (6)
  - Fatigue [Recovering/Resolving]
  - Platelet count decreased [Not Recovered/Not Resolved]
  - Malaise [Unknown]
  - Bone marrow failure [Unknown]
  - Diarrhoea [Recovered/Resolved]
  - Diarrhoea [Recovered/Resolved]

NARRATIVE: CASE EVENT DATE: 201602
